FAERS Safety Report 20718724 (Version 3)
Quarter: 2022Q2

REPORT INFORMATION
  Report Type: Spontaneous
  Country: US (occurrence: US)
  Receive Date: 20220418
  Receipt Date: 20220608
  Transmission Date: 20220721
  Serious: Yes (Other)
  Sender: FDA-Public Use
  Company Number: US-GLAXOSMITHKLINE-US2022AMR065145

PATIENT

DRUGS (2)
  1. ZEJULA [Suspect]
     Active Substance: NIRAPARIB
     Indication: Ovarian cancer
     Dosage: UNK
     Dates: start: 202203
  2. ZEJULA [Suspect]
     Active Substance: NIRAPARIB
     Dosage: 200 MG, QD
     Dates: start: 20220403

REACTIONS (5)
  - Malignant neoplasm progression [Unknown]
  - Dry mouth [Not Recovered/Not Resolved]
  - Prescription drug used without a prescription [Unknown]
  - Drug monitoring procedure not performed [Unknown]
  - Drug ineffective [Unknown]
